FAERS Safety Report 9966535 (Version 2)
Quarter: 2014Q1

REPORT INFORMATION
  Report Type: Report from Study
  Country: US (occurrence: US)
  Receive Date: 20140305
  Receipt Date: 20140305
  Transmission Date: 20141002
  Serious: No
  Sender: FDA-Public Use
  Company Number: US-ABBVIE-12P-163-0916847-00

PATIENT
  Sex: Female

DRUGS (24)
  1. HUMIRA [Suspect]
     Indication: RHEUMATOID ARTHRITIS
     Dates: start: 2008
  2. HUMIRA [Suspect]
     Dates: end: 2012
  3. HUMIRA [Suspect]
  4. ORENCIA [Suspect]
     Indication: C-REACTIVE PROTEIN INCREASED
     Dosage: TOOK 2 DOSES
  5. METHOTREXATE [Suspect]
     Indication: PRODUCT USED FOR UNKNOWN INDICATION
  6. METFORMIN [Suspect]
     Indication: DIABETES MELLITUS
  7. DETROL LA [Concomitant]
     Indication: INCONTINENCE
     Dosage: 2 TABS
  8. DETROL LA [Concomitant]
     Indication: ROAD TRAFFIC ACCIDENT
  9. LOMOTIL [Concomitant]
     Indication: INCONTINENCE
  10. LOMOTIL [Concomitant]
     Indication: ROAD TRAFFIC ACCIDENT
  11. LOMOTIL [Concomitant]
     Indication: DIARRHOEA
  12. GENERIC ZESTRIL [Concomitant]
     Indication: HYPERTENSION
     Dosage: EVERY MORNING
  13. NEXIUM [Concomitant]
     Indication: DYSPEPSIA
  14. LEFLUNOMIDE [Concomitant]
     Indication: RHEUMATOID ARTHRITIS
     Dosage: 20 MG DAILY
  15. AMLODIPINE BESYLATE [Concomitant]
     Indication: HYPERTENSION
     Dosage: AT NIGHT
  16. ADVAIR [Concomitant]
     Indication: ASTHMA
     Dosage: 500/50 1 PUFF TWICE DAILY
  17. SINGULAR [Concomitant]
     Indication: ASTHMA
     Dosage: 10 MG DAILY
  18. LISINOPRIL [Concomitant]
     Indication: HYPERTENSION
  19. BENADRYL [Concomitant]
     Indication: HYPERSENSITIVITY
  20. CYMBALTA [Concomitant]
     Indication: PAIN
     Dosage: 60 MG
  21. MONOCLAST [Concomitant]
     Indication: ASTHMA
  22. TYLENOL #4 W/CODEINE [Concomitant]
     Indication: NECK PAIN
  23. TYLENOL #4 W/CODEINE [Concomitant]
     Indication: BACK PAIN
  24. TYLENOL #4 W/CODEINE [Concomitant]
     Indication: ROAD TRAFFIC ACCIDENT

REACTIONS (27)
  - C-reactive protein increased [Unknown]
  - Rheumatoid arthritis [Recovering/Resolving]
  - Arthralgia [Unknown]
  - Nail discolouration [Unknown]
  - Asthma [Recovering/Resolving]
  - Blood cholesterol increased [Recovering/Resolving]
  - Urinary tract infection [Recovering/Resolving]
  - Drug ineffective [Unknown]
  - Nausea [Unknown]
  - Malaise [Unknown]
  - Wound haemorrhage [Unknown]
  - Insomnia [Recovering/Resolving]
  - Anxiety [Recovering/Resolving]
  - Panic attack [Unknown]
  - Pain [Unknown]
  - Memory impairment [Not Recovered/Not Resolved]
  - Malaise [Not Recovered/Not Resolved]
  - Hyperhidrosis [Not Recovered/Not Resolved]
  - Dizziness [Not Recovered/Not Resolved]
  - Blood test abnormal [Not Recovered/Not Resolved]
  - Burning sensation [Not Recovered/Not Resolved]
  - Alopecia [Not Recovered/Not Resolved]
  - Arthropathy [Unknown]
  - Bronchitis [Unknown]
  - Diabetes mellitus [Unknown]
  - Nausea [Unknown]
  - Vomiting [Unknown]
